FAERS Safety Report 19031358 (Version 2)
Quarter: 2021Q1

REPORT INFORMATION
  Report Type: Report from Study
  Country: IL (occurrence: IL)
  Receive Date: 20210319
  Receipt Date: 20210319
  Transmission Date: 20210420
  Serious: Yes (Death, Hospitalization)
  Sender: FDA-Public Use
  Company Number: IL-ORPHANEU-2018000685

PATIENT

DRUGS (5)
  1. CARBAGLU [Suspect]
     Active Substance: CARGLUMIC ACID
     Dosage: 12 TABLETS DAILY
  2. CARBAGLU [Suspect]
     Active Substance: CARGLUMIC ACID
     Dosage: 14 TABLETS A DAY
     Dates: start: 20200519
  3. CARBAGLU [Suspect]
     Active Substance: CARGLUMIC ACID
     Indication: N-ACETYLGLUTAMATE SYNTHASE DEFICIENCY
     Dosage: 11 TABLETS DAILY
  4. CARBAGLU [Suspect]
     Active Substance: CARGLUMIC ACID
     Dosage: 15 TABLETS A DAY
  5. CARBAGLU [Suspect]
     Active Substance: CARGLUMIC ACID
     Dosage: PER DAY
     Dates: start: 20200519

REACTIONS (6)
  - Altered state of consciousness [Not Recovered/Not Resolved]
  - Productive cough [Not Recovered/Not Resolved]
  - Death [Fatal]
  - Urinary retention [Not Recovered/Not Resolved]
  - Hypothermia [Unknown]
  - Feeling abnormal [Unknown]

NARRATIVE: CASE EVENT DATE: 20210107
